FAERS Safety Report 7928506-9 (Version None)
Quarter: 2011Q4

REPORT INFORMATION
  Report Type: 
  Country: None (occurrence: None)
  Receive Date: 20111118
  Receipt Date: 20111108
  Transmission Date: 20120403
  Serious: Yes (Hospitalization, Other)
  Sender: FDA-Public Use
  Company Number: US-ELI_LILLY_AND_COMPANY-US201108009474

PATIENT
  Sex: Female

DRUGS (9)
  1. STRATTERA [Suspect]
     Dosage: 40 MG, UNK
     Dates: start: 20110718, end: 20110803
  2. TRILEPTAL [Concomitant]
     Dosage: 300 MG, EACH MORNING
  3. STRATTERA [Suspect]
     Dosage: 18 MG, UNK
  4. STRATTERA [Suspect]
     Dosage: 25 MG, UNK
  5. STRATTERA [Suspect]
     Dosage: 40 MG, UNK
     Dates: start: 20110906
  6. RISPERIDONE [Concomitant]
     Dosage: 1 MG, QD
  7. TRILEPTAL [Concomitant]
     Dosage: 600 MG, EACH EVENING
  8. TRAZODONE HCL [Concomitant]
     Dosage: 150 MG, EACH EVENING
  9. STRATTERA [Suspect]
     Dosage: 10 MG, UNK

REACTIONS (4)
  - APPENDICITIS [None]
  - ARRHYTHMIA [None]
  - CHEST PAIN [None]
  - PALPITATIONS [None]
